FAERS Safety Report 20526931 (Version 1)
Quarter: 2022Q1

REPORT INFORMATION
  Report Type: Spontaneous
  Country: US (occurrence: US)
  Receive Date: 20220228
  Receipt Date: 20220228
  Transmission Date: 20220424
  Serious: No
  Sender: FDA-Public Use
  Company Number: US-PFIZER INC-202200071531

PATIENT
  Age: 41 Year
  Sex: Female

DRUGS (2)
  1. XELJANZ XR [Suspect]
     Active Substance: TOFACITINIB CITRATE
     Dosage: 11 MG
  2. KEVZARA [Suspect]
     Active Substance: SARILUMAB
     Dosage: UNK

REACTIONS (5)
  - Hypersensitivity [Recovered/Resolved]
  - Injection site swelling [Unknown]
  - Injection site bruising [Unknown]
  - Nausea [Recovered/Resolved]
  - Vomiting [Recovered/Resolved]

NARRATIVE: CASE EVENT DATE: 20211116
